FAERS Safety Report 18573477 (Version 2)
Quarter: 2020Q4

REPORT INFORMATION
  Report Type: Report from Study
  Country: AU (occurrence: AU)
  Receive Date: 20201203
  Receipt Date: 20201211
  Transmission Date: 20210114
  Serious: Yes (Hospitalization)
  Sender: FDA-Public Use
  Company Number: AU-ASTRAZENECA-2020SF60335

PATIENT
  Age: 36 Year
  Sex: Female

DRUGS (3)
  1. AVAMYS [Concomitant]
     Active Substance: FLUTICASONE FUROATE
     Dosage: UNKNOWN, 2 / TWICE PER DAY/ 5
  2. SYMBICORT [Suspect]
     Active Substance: BUDESONIDE\FORMOTEROL FUMARATE DIHYDRATE
     Indication: CHRONIC OBSTRUCTIVE PULMONARY DISEASE
     Dosage: UNKNOWN, 2/ TWICE PER DAY/ 4
     Route: 055
     Dates: start: 2013
  3. VENTOLIN [Concomitant]
     Active Substance: ALBUTEROL SULFATE
     Dosage: UNKNOWN, 1/ AS NEEDED/ 33

REACTIONS (3)
  - Treatment noncompliance [Unknown]
  - Intentional product misuse [Unknown]
  - Chronic obstructive pulmonary disease [Not Recovered/Not Resolved]
